FAERS Safety Report 21842181 (Version 1)
Quarter: 2023Q1

REPORT INFORMATION
  Report Type: Spontaneous
  Country: US (occurrence: None)
  Receive Date: 20230109
  Receipt Date: 20230109
  Transmission Date: 20230417
  Serious: No
  Sender: FDA-Public Use
  Company Number: None

PATIENT
  Age: 74 Year
  Sex: Female
  Weight: 72.21 kg

DRUGS (12)
  1. CAPECITABINE [Suspect]
     Active Substance: CAPECITABINE
     Dosage: FREQUENCY : TWICE A DAY;?
     Route: 048
  2. CAPECITABINE [Concomitant]
     Active Substance: CAPECITABINE
     Dosage: FREQUENCY : TWICE A DAY;?
     Route: 048
  3. ACETAMINOPHEN [Concomitant]
  4. COVID BOOSTER [Concomitant]
  5. FLU SHOT [Concomitant]
  6. HEPCEPTIN [Concomitant]
  7. KLOR CON [Concomitant]
  8. LIPITOR [Concomitant]
     Active Substance: ATORVASTATIN CALCIUM
  9. MAGNESIUM [Concomitant]
  10. ONDANSETRON [Concomitant]
  11. PEPCID [Concomitant]
  12. TUKYSA [Concomitant]

REACTIONS (1)
  - Therapy interrupted [None]
